FAERS Safety Report 20891859 (Version 1)
Quarter: 2022Q2

REPORT INFORMATION
  Report Type: Other
  Country: US (occurrence: None)
  Receive Date: 20220530
  Receipt Date: 20220530
  Transmission Date: 20220720
  Serious: Yes (Hospitalization)
  Sender: FDA-Public Use
  Company Number: US-ROCHE-3071035

PATIENT
  Age: 57 Year
  Sex: Female
  Weight: 68.100 kg

DRUGS (11)
  1. OCREVUS [Suspect]
     Active Substance: OCRELIZUMAB
     Indication: Relapsing-remitting multiple sclerosis
     Dosage: INITIALLY 300 MG DAY 1 AND DAY 15; DATE OF TREATMENT: 02/FEB/2021, 18/JUL/2019, 02/DEC/2021, 16/AUG/
     Route: 042
  2. PFIZER-BIONTECH COVID-19 VACCINE [Suspect]
     Active Substance: TOZINAMERAN
     Indication: Product use in unapproved indication
     Route: 065
  3. FLUOXETINE [Concomitant]
     Active Substance: FLUOXETINE HYDROCHLORIDE
  4. CALCIUM [Concomitant]
     Active Substance: CALCIUM
  5. ERGOCALCIFEROL [Concomitant]
     Active Substance: ERGOCALCIFEROL
  6. LIPITOR [Concomitant]
     Active Substance: ATORVASTATIN CALCIUM
  7. EVISTA [Concomitant]
     Active Substance: RALOXIFENE HYDROCHLORIDE
  8. MELATONIN [Concomitant]
     Active Substance: MELATONIN
  9. CRANBERRY [Concomitant]
     Active Substance: CRANBERRY
  10. DALFAMPRIDINE [Concomitant]
     Active Substance: DALFAMPRIDINE
  11. BACLOFEN [Concomitant]
     Active Substance: BACLOFEN

REACTIONS (3)
  - Illness [Unknown]
  - Pyrexia [Recovered/Resolved]
  - Urinary tract infection [Not Recovered/Not Resolved]

NARRATIVE: CASE EVENT DATE: 20211202
